FAERS Safety Report 9727741 (Version 1)
Quarter: 2013Q4

REPORT INFORMATION
  Report Type: Spontaneous
  Country: US (occurrence: US)
  Receive Date: 20131203
  Receipt Date: 20131203
  Transmission Date: 20140711
  Serious: No
  Sender: FDA-Public Use
  Company Number: US-ENDO PHARMACEUTICALS INC.-AMIT20120011

PATIENT
  Age: 48 Year
  Sex: Female

DRUGS (1)
  1. AMITRIPTYLINE HCL 25MG [Suspect]
     Indication: MIGRAINE
     Route: 048
     Dates: start: 2011

REACTIONS (1)
  - Drug ineffective [Not Recovered/Not Resolved]
